FAERS Safety Report 12117799 (Version 1)
Quarter: 2016Q1

REPORT INFORMATION
  Report Type: Report from Study
  Country: US (occurrence: US)
  Receive Date: 20160226
  Receipt Date: 20160226
  Transmission Date: 20160526
  Serious: Yes (Hospitalization)
  Sender: FDA-Public Use
  Company Number: US-ROCHE-1714900

PATIENT
  Age: 51 Year
  Sex: Male
  Weight: 59.4 kg

DRUGS (4)
  1. LOVENOX [Concomitant]
     Active Substance: ENOXAPARIN SODIUM
  2. CETUXIMAB [Suspect]
     Active Substance: CETUXIMAB
     Indication: ADENOCARCINOMA OF COLON
     Dosage: DATE OF LAST ADMINISTERED DOSE 05/FEB/2016 (1600MG)
     Route: 042
     Dates: start: 20160122
  3. VEMURAFENIB [Suspect]
     Active Substance: VEMURAFENIB
     Indication: ADENOCARCINOMA OF COLON
     Route: 048
     Dates: start: 20151224
  4. IRINOTECAN [Suspect]
     Active Substance: IRINOTECAN
     Indication: ADENOCARCINOMA OF COLON
     Dosage: DATE OF LAST AMINISTERED DOSE: 05/FEB/2016 (576MG)
     Route: 042
     Dates: start: 20160122

REACTIONS (1)
  - Hemiparesis [Not Recovered/Not Resolved]

NARRATIVE: CASE EVENT DATE: 20160219
